FAERS Safety Report 24361881 (Version 2)
Quarter: 2024Q4

REPORT INFORMATION
  Report Type: Report from Study
  Country: CN (occurrence: CN)
  Receive Date: 20240925
  Receipt Date: 20241010
  Transmission Date: 20250115
  Serious: Yes (Death, Life-Threatening, Hospitalization)
  Sender: TEVA
  Company Number: CN-TEVA-VS-3244787

PATIENT
  Age: 66 Year
  Sex: Male

DRUGS (11)
  1. BENDAMUSTINE [Suspect]
     Active Substance: BENDAMUSTINE
     Indication: Mantle cell lymphoma
     Dosage: ONCE, FORMULATION: LIQUID; THERAPY DURATION:1 HOUR 45 MINS
     Route: 042
     Dates: start: 20230208, end: 20230208
  2. BENDAMUSTINE [Suspect]
     Active Substance: BENDAMUSTINE
     Indication: Mantle cell lymphoma
     Dosage: ONCE, FORMULATION: LIQUID; THERAPY DURATION: 1 HOUR 33 MINS
     Route: 042
     Dates: start: 20230207, end: 20230207
  3. BENDAMUSTINE [Suspect]
     Active Substance: BENDAMUSTINE
     Indication: Mantle cell lymphoma
     Dosage: ONCE, FORMULATION: LIQUID; THERAPY DURATION:1 HOUR 13 MINS
     Route: 042
     Dates: start: 20230307, end: 20230307
  4. BENDAMUSTINE [Suspect]
     Active Substance: BENDAMUSTINE
     Indication: Mantle cell lymphoma
     Dosage: ONCE, FORMULATION: LIQUID; THERAPY DURATION:1 HOUR 47 MINS
     Route: 042
     Dates: start: 20230308, end: 20230308
  5. BENDAMUSTINE [Suspect]
     Active Substance: BENDAMUSTINE
     Indication: Mantle cell lymphoma
     Dosage: ONCE,FORMULATION: LIQUID; THERAPY DURATION: 2 HOURS 0 MINS
     Route: 042
     Dates: start: 20230110, end: 20230110
  6. BENDAMUSTINE [Suspect]
     Active Substance: BENDAMUSTINE
     Indication: Mantle cell lymphoma
     Dosage: ONCE, FORMULATION: LIQUID; THERAPY DURATION: 1 HOUR 36 MINS
     Route: 042
     Dates: start: 20230111, end: 20230111
  7. ACALABRUTINIB [Suspect]
     Active Substance: ACALABRUTINIB
     Indication: Mantle cell lymphoma
     Dosage: THERAPY DURATION:  2 WEEKS 5 DAYS
     Route: 048
     Dates: start: 20230218, end: 20230308
  8. ACALABRUTINIB [Suspect]
     Active Substance: ACALABRUTINIB
     Indication: Mantle cell lymphoma
     Dosage: THERAPY DURATION: 4 WEEKS 3 DAYS
     Route: 048
     Dates: start: 20230110, end: 20230209
  9. RITUXIMAB [Suspect]
     Active Substance: RITUXIMAB
     Indication: Mantle cell lymphoma
     Dosage: FORMULATION: LIQUID ; ONCE; THERAPY DURATION:3 HOURS 20 MINS
     Route: 042
     Dates: start: 20230207, end: 20230207
  10. RITUXIMAB [Suspect]
     Active Substance: RITUXIMAB
     Indication: Mantle cell lymphoma
     Dosage: FORMULATION: LIQUID ; ONCE; THERAPY DURATION:3 HOURS 30 MINS
     Route: 042
     Dates: start: 20230307, end: 20230307
  11. RITUXIMAB [Suspect]
     Active Substance: RITUXIMAB
     Indication: Mantle cell lymphoma
     Dosage: FORMULATION: LIQUID ; ONCE; THERAPY DURATION:4 HOURS 0 MINS
     Route: 042
     Dates: start: 20230110, end: 20230110

REACTIONS (1)
  - COVID-19 pneumonia [Fatal]

NARRATIVE: CASE EVENT DATE: 20230309
